FAERS Safety Report 8032879-9 (Version None)
Quarter: 2012Q1

REPORT INFORMATION
  Report Type: 
  Country: None (occurrence: None)
  Receive Date: 20120110
  Receipt Date: 20111230
  Transmission Date: 20120608
  Serious: Yes (Hospitalization, Other)
  Sender: FDA-Public Use
  Company Number: FR-PFIZER INC-2012004786

PATIENT
  Age: 85 Year
  Sex: Female

DRUGS (7)
  1. ACTONEL [Concomitant]
  2. ASPIRIN [Concomitant]
  3. VALSARTAN  AND HYDROCHLOROTHIAZIDE [Concomitant]
  4. CORDARONE [Suspect]
     Dosage: 200 MG, 1X/DAY
     Route: 048
     Dates: end: 20110901
  5. TRAMADOL HCL [Concomitant]
  6. STABLON [Concomitant]
  7. DIOSMIN [Concomitant]

REACTIONS (3)
  - LUNG DISORDER [None]
  - LEUKOCYTOSIS [None]
  - RENAL FAILURE [None]
